FAERS Safety Report 4901222-3 (Version None)
Quarter: 2006Q1

REPORT INFORMATION
  Report Type: 
  Country: None (occurrence: None)
  Receive Date: 20060201
  Receipt Date: 20060120
  Transmission Date: 20060701
  Serious: Yes (Hospitalization, Other)
  Sender: FDA-Public Use
  Company Number: 2005131906

PATIENT
  Age: 57 Year
  Sex: Female

DRUGS (5)
  1. AMLODIPINE [Suspect]
     Indication: HYPERTENSION
     Dosage: 5 MG (5 MG, 1 IN 1 D), ORAL
     Route: 048
     Dates: start: 20050224
  2. CLOZAPINE [Suspect]
     Indication: ILL-DEFINED DISORDER
     Dosage: 100 MG PLUS 275 MG (1 IN 1 D), ORAL
     Route: 048
     Dates: start: 20050321, end: 20050831
  3. VALPROIC ACID [Suspect]
     Indication: AFFECTIVE DISORDER
     Dosage: 900 MG (900 MG, 1 IN 1 D), ORAL
     Route: 048
     Dates: start: 20050512
  4. AMISULPRIDE (AMISULPRIDE) [Concomitant]
  5. CO-CODAMOL (CODEINE PHOSPHATE, PARACETAMOL) [Concomitant]

REACTIONS (1)
  - NEUTROPENIA [None]
